FAERS Safety Report 20470168 (Version 1)
Quarter: 2022Q1

REPORT INFORMATION
  Report Type: Report from Study
  Country: FR (occurrence: FR)
  Receive Date: 20220214
  Receipt Date: 20220214
  Transmission Date: 20220423
  Serious: Yes (Hospitalization, Other)
  Sender: FDA-Public Use
  Company Number: FR-SERVIER-S22000906

PATIENT

DRUGS (10)
  1. PEGASPARGASE [Suspect]
     Active Substance: PEGASPARGASE
     Indication: Acute lymphocytic leukaemia
     Dosage: 3525 IU, D15 AND D29
     Route: 042
     Dates: start: 20191028, end: 20191129
  2. MERCAPTOPURINE [Suspect]
     Active Substance: MERCAPTOPURINE
     Indication: Acute lymphocytic leukaemia
     Dosage: 100 MG, D1 TO D14, D29 TO D43
     Route: 048
     Dates: start: 20191014, end: 20191129
  3. METHOTREXATE [Suspect]
     Active Substance: METHOTREXATE
     Indication: Acute lymphocytic leukaemia
     Dosage: 15 MG, D3, D29
     Route: 037
     Dates: start: 20191015, end: 20191115
  4. HYDROCORTISONE [Suspect]
     Active Substance: HYDROCORTISONE
     Indication: Acute lymphocytic leukaemia
     Dosage: 15 MG, D3, D29
     Route: 037
     Dates: start: 20191015, end: 20191115
  5. CYTARABINE [Suspect]
     Active Substance: CYTARABINE
     Indication: Acute lymphocytic leukaemia
     Dosage: 30 MG, D3 AND D29
     Route: 037
     Dates: start: 20191015, end: 20191115
  6. CYTARABINE [Suspect]
     Active Substance: CYTARABINE
     Dosage: 110 MG, D2 TO D5, D9 TO D12, D30
     Route: 042
     Dates: start: 20191015, end: 20191126
  7. AMINO ACIDS\CARBOHYDRATES\MINERALS\SOYBEAN OIL\VITAMINS [Concomitant]
     Active Substance: AMINO ACIDS\CARBOHYDRATES\MINERALS\SOYBEAN OIL\VITAMINS
     Indication: Parenteral nutrition
     Dosage: 1500 ML
     Route: 065
  8. TN UNSPECIFIED [Concomitant]
     Indication: Prophylaxis
     Dosage: 800 MG, THREE TIMES/WEEK
     Route: 048
  9. TN UNSPECIFIED [Concomitant]
     Indication: Nausea
     Dosage: 8 MG, BID
     Route: 048
  10. TN UNSPECIFIED [Concomitant]
     Indication: Vomiting

REACTIONS (2)
  - Weight decreased [Recovered/Resolved]
  - Abdominal pain [Recovered/Resolved]

NARRATIVE: CASE EVENT DATE: 20191118
